FAERS Safety Report 10358389 (Version 1)
Quarter: 2014Q3

REPORT INFORMATION
  Report Type: Spontaneous
  Country: US (occurrence: US)
  Receive Date: 20140801
  Receipt Date: 20140801
  Transmission Date: 20150326
  Serious: Yes (Hospitalization)
  Sender: FDA-Public Use
  Company Number: US-B.I. PHARMACEUTICALS,INC./RIDGEFIELD-2014-BI-34766BP

PATIENT
  Age: 77 Year
  Sex: Female

DRUGS (2)
  1. PRADAXA [Suspect]
     Active Substance: DABIGATRAN ETEXILATE MESYLATE
     Indication: ATRIAL FIBRILLATION
     Route: 065
     Dates: end: 201301
  2. ADVIL [Concomitant]
     Active Substance: IBUPROFEN
     Indication: MUSCULOSKELETAL DISCOMFORT
     Route: 065

REACTIONS (5)
  - Haematuria [Unknown]
  - Coagulopathy [Unknown]
  - Lung infiltration [Unknown]
  - Renal failure acute [Unknown]
  - Anaemia [Unknown]

NARRATIVE: CASE EVENT DATE: 201301
